FAERS Safety Report 25841687 (Version 2)
Quarter: 2025Q4

REPORT INFORMATION
  Report Type: Spontaneous
  Country: EU (occurrence: EU)
  Receive Date: 20250924
  Receipt Date: 20251007
  Transmission Date: 20260118
  Serious: Yes (Other)
  Sender: SANDOZ
  Company Number: EU-PFIZER INC-202500179458

PATIENT
  Age: 56 Year
  Sex: Male

DRUGS (1)
  1. ADALIMUMAB [Suspect]
     Active Substance: ADALIMUMAB
     Indication: Ankylosing spondylitis
     Dosage: 40 MG, (BIMONTHLY)
     Route: 065
     Dates: start: 201106

REACTIONS (2)
  - Autoimmune myositis [Recovered/Resolved]
  - Antisynthetase syndrome [Recovered/Resolved]
